FAERS Safety Report 7957346-X (Version None)
Quarter: 2011Q4

REPORT INFORMATION
  Report Type: 
  Country: None (occurrence: None)
  Receive Date: 20111205
  Receipt Date: 20111130
  Transmission Date: 20120403
  Serious: Yes (Death, Life-Threatening, Hospitalization)
  Sender: FDA-Public Use
  Company Number: GXKR2011DE01117

PATIENT
  Sex: Male
  Weight: 85 kg

DRUGS (4)
  1. FLUOXETINE [Suspect]
     Indication: SEDATION
     Dosage: 180 MG DAILY FOR 3 MONTHS
     Route: 065
     Dates: start: 20101101
  2. NITOMAN [Concomitant]
     Dosage: 150 MG, UNK
     Route: 065
  3. DIAZEPAM [Concomitant]
     Dosage: 22.5 MG, UNK
     Route: 065
     Dates: start: 20101101
  4. NEUROCIL [Interacting]
     Indication: SEDATION
     Dosage: 67.2 MG, UNK
     Route: 065
     Dates: start: 20101101

REACTIONS (14)
  - RENAL FAILURE ACUTE [None]
  - VOMITING [None]
  - BACTERIAL DISEASE CARRIER [None]
  - OVERDOSE [None]
  - PYREXIA [None]
  - PNEUMONIA ASPIRATION [None]
  - SEPSIS [None]
  - FATIGUE [None]
  - URINARY TRACT INFECTION [None]
  - DYSPNOEA [None]
  - HYPONATRAEMIA [None]
  - DRUG INTERACTION [None]
  - HEPATITIS [None]
  - COMA [None]
